FAERS Safety Report 5171491-6 (Version None)
Quarter: 2006Q4

REPORT INFORMATION
  Report Type: 
  Country: None (occurrence: None)
  Receive Date: 20061213
  Receipt Date: 20060705
  Transmission Date: 20070319
  Serious: Yes (Hospitalization)
  Sender: FDA-Public Use
  Company Number: US-AMGEN-STX185424

PATIENT
  Sex: Female
  Weight: 122.6 kg

DRUGS (12)
  1. ENBREL [Suspect]
     Indication: PSORIASIS
     Route: 058
     Dates: start: 20051204, end: 20060625
  2. INSULIN [Concomitant]
  3. LIPITOR [Concomitant]
  4. OXYGEN [Concomitant]
  5. LOPRESSOR [Concomitant]
  6. VITAMINS NOS [Concomitant]
  7. ASPIRIN [Concomitant]
  8. PATANOL [Concomitant]
     Route: 047
  9. HYDROCODONE [Concomitant]
  10. FLEXERIL [Concomitant]
  11. AMITRIPTYLINE HCL [Concomitant]
  12. FERROUS SULFATE TAB [Concomitant]

REACTIONS (3)
  - CELLULITIS [None]
  - FURUNCLE [None]
  - STAPHYLOCOCCAL INFECTION [None]
